FAERS Safety Report 9800170 (Version 3)
Quarter: 2014Q1

REPORT INFORMATION
  Report Type: Spontaneous
  Country: US (occurrence: US)
  Receive Date: 20140106
  Receipt Date: 20140107
  Transmission Date: 20141002
  Serious: Yes (Disabling)
  Sender: FDA-Public Use
  Company Number: US-GE HEALTHCARE MEDICAL DIAGNOSTICS-OSCN-PR-0904S-0201

PATIENT
  Age: 53 Year
  Sex: Male

DRUGS (15)
  1. OMNISCAN [Suspect]
     Indication: RENAL CELL CARCINOMA
     Route: 042
     Dates: start: 20011119, end: 20011119
  2. OMNISCAN [Suspect]
     Indication: LIGAMENT SPRAIN
     Route: 042
     Dates: start: 20020410, end: 20020410
  3. OMNISCAN [Suspect]
     Indication: RENAL CELL CARCINOMA
     Route: 042
     Dates: start: 20020730, end: 20020730
  4. OMNISCAN [Suspect]
     Indication: IMPAIRED HEALING
     Route: 042
     Dates: start: 20021231, end: 20021231
  5. OMNISCAN [Suspect]
     Route: 042
     Dates: start: 20030430, end: 20030430
  6. OMNISCAN [Suspect]
     Route: 042
     Dates: start: 20030902, end: 20030902
  7. OMNISCAN [Suspect]
     Route: 042
     Dates: start: 20031229, end: 20031229
  8. OMNISCAN [Suspect]
     Route: 042
     Dates: start: 20040413, end: 20040413
  9. OMNISCAN [Suspect]
     Route: 042
     Dates: start: 20010816, end: 20010816
  10. GADOLINIUM (UNSPECIFIED) [Suspect]
     Indication: RENAL CELL CARCINOMA
     Route: 042
     Dates: start: 20010503, end: 20010503
  11. GADOLINIUM (UNSPECIFIED) [Suspect]
     Indication: PRODUCT USED FOR UNKNOWN INDICATION
  12. MAGNEVIST [Suspect]
     Indication: HEADACHE
     Route: 042
     Dates: start: 20040425, end: 20040425
  13. MAGNEVIST [Suspect]
     Indication: RENAL FAILURE CHRONIC
     Route: 042
     Dates: start: 20040809, end: 20040809
  14. MAGNEVIST [Suspect]
     Indication: PRODUCT USED FOR UNKNOWN INDICATION
  15. MULTIHANCE [Suspect]
     Dates: start: 20040904, end: 20040904

REACTIONS (1)
  - Nephrogenic systemic fibrosis [Not Recovered/Not Resolved]
